FAERS Safety Report 4876177-0 (Version None)
Quarter: 2006Q1

REPORT INFORMATION
  Report Type: 
  Country: None (occurrence: None)
  Receive Date: 20060106
  Receipt Date: 20051221
  Transmission Date: 20060701
  Serious: Yes (Hospitalization)
  Sender: FDA-Public Use
  Company Number: JP200512000874

PATIENT
  Age: 71 Year
  Sex: Female
  Weight: 45 kg

DRUGS (6)
  1. RALOXIFENE HCL [Suspect]
     Indication: OSTEOPOROSIS POSTMENOPAUSAL
     Dosage: 60 MG, DAILY (1/D), ORAL
     Route: 048
     Dates: start: 20050527
  2. SUCRALFATE [Concomitant]
  3. BAYASPIRIN (ACETYLSLICYLIC ACID) [Concomitant]
  4. LANSOPRAZOLE [Concomitant]
  5. SELBEX (TEPRENONE) [Concomitant]
  6. ASLPARA-CA (ASPARTATE CALCIUM) [Concomitant]

REACTIONS (1)
  - CEREBRAL INFARCTION [None]
